FAERS Safety Report 7380275-X (Version None)
Quarter: 2011Q1

REPORT INFORMATION
  Report Type: 
  Country: None (occurrence: None)
  Receive Date: 20110318
  Receipt Date: 20110308
  Transmission Date: 20110831
  Serious: Yes (Hospitalization)
  Sender: FDA-Public Use
  Company Number: 027036

PATIENT
  Sex: Female
  Weight: 58 kg

DRUGS (6)
  1. SPIRIVA [Concomitant]
  2. CIMZIA [Suspect]
     Indication: RHEUMATOID ARTHRITIS
     Dosage: 200 MG, NUMBER OF DOSES: 19 SUBCUTANEOUS; SUBCUTANEOUS, 200 MG, NUMBER OF DOSES RECEIVED: 1, SUBCUTA
     Route: 058
     Dates: start: 20110214
  3. CIMZIA [Suspect]
     Indication: RHEUMATOID ARTHRITIS
     Dosage: 200 MG, NUMBER OF DOSES: 19 SUBCUTANEOUS; SUBCUTANEOUS, 200 MG, NUMBER OF DOSES RECEIVED: 1, SUBCUTA
     Route: 058
     Dates: start: 20100212, end: 20110112
  4. CIMZIA [Suspect]
     Indication: RHEUMATOID ARTHRITIS
     Dosage: 200 MG, NUMBER OF DOSES: 19 SUBCUTANEOUS; SUBCUTANEOUS, 200 MG, NUMBER OF DOSES RECEIVED: 1, SUBCUTA
     Route: 058
     Dates: start: 20110131
  5. SYMBICORT [Concomitant]
  6. INSULIN [Concomitant]

REACTIONS (2)
  - PNEUMONIA [None]
  - MYOCARDIAL INFARCTION [None]
